FAERS Safety Report 23713140 (Version 3)
Quarter: 2024Q3

REPORT INFORMATION
  Report Type: Spontaneous
  Country: US (occurrence: US)
  Receive Date: 20240405
  Receipt Date: 20240723
  Transmission Date: 20241016
  Serious: Yes (Hospitalization)
  Sender: SANOFI AVENTIS
  Company Number: US-SA-SAC20240405000029

PATIENT
  Age: 81 Year
  Sex: Female
  Weight: 67.1 kg

DRUGS (41)
  1. DUPIXENT [Suspect]
     Active Substance: DUPILUMAB
     Indication: Pulmonary hypertension
     Dosage: 300 MG, QOW
     Route: 058
     Dates: end: 2024
  2. AMLODIPINE BESYLATE [Concomitant]
     Active Substance: AMLODIPINE BESYLATE
     Dosage: UNK
  3. AMLODIPINE BESYLATE [Concomitant]
     Active Substance: AMLODIPINE BESYLATE
  4. BOSENTAN [Concomitant]
     Active Substance: BOSENTAN
     Dosage: UNK
  5. BOSENTAN [Concomitant]
     Active Substance: BOSENTAN
  6. CYANOCOBALAMIN [Concomitant]
     Active Substance: CYANOCOBALAMIN
     Dosage: UNK
  7. CYANOCOBALAMIN [Concomitant]
     Active Substance: CYANOCOBALAMIN
  8. STELARA [Concomitant]
     Active Substance: USTEKINUMAB
     Dosage: UNK
  9. STELARA [Concomitant]
     Active Substance: USTEKINUMAB
  10. ALBUTEROL SULFATE [Concomitant]
     Active Substance: ALBUTEROL SULFATE
     Dosage: UNK
  11. ALBUTEROL SULFATE [Concomitant]
     Active Substance: ALBUTEROL SULFATE
  12. ISOSORBIDE MONONITRATE [Concomitant]
     Active Substance: ISOSORBIDE MONONITRATE
     Dosage: UNK
  13. RABEPRAZOLE SODIUM [Concomitant]
     Active Substance: RABEPRAZOLE SODIUM
     Dosage: UNK
  14. RABEPRAZOLE SODIUM [Concomitant]
     Active Substance: RABEPRAZOLE SODIUM
  15. GABAPENTIN [Concomitant]
     Active Substance: GABAPENTIN
     Dosage: UNK
  16. GABAPENTIN [Concomitant]
     Active Substance: GABAPENTIN
  17. HUMIRA [Concomitant]
     Active Substance: ADALIMUMAB
     Dosage: UNK
  18. HUMIRA [Concomitant]
     Active Substance: ADALIMUMAB
  19. SYMBICORT [Concomitant]
     Active Substance: BUDESONIDE\FORMOTEROL FUMARATE DIHYDRATE
     Dosage: UNK
  20. SYMBICORT [Concomitant]
     Active Substance: BUDESONIDE\FORMOTEROL FUMARATE DIHYDRATE
  21. BACLOFEN [Concomitant]
     Active Substance: BACLOFEN
     Dosage: UNK
  22. BACLOFEN [Concomitant]
     Active Substance: BACLOFEN
  23. VESICARE [Concomitant]
     Active Substance: SOLIFENACIN SUCCINATE
     Dosage: UNK
  24. VESICARE [Concomitant]
     Active Substance: SOLIFENACIN SUCCINATE
  25. METOPROLOL TARTRATE [Concomitant]
     Active Substance: METOPROLOL TARTRATE
     Dosage: UNK
  26. METOPROLOL TARTRATE [Concomitant]
     Active Substance: METOPROLOL TARTRATE
  27. SPIRONOLACTONE [Concomitant]
     Active Substance: SPIRONOLACTONE
     Dosage: UNK
  28. SPIRONOLACTONE [Concomitant]
     Active Substance: SPIRONOLACTONE
  29. PRIMIDONE [Concomitant]
     Active Substance: PRIMIDONE
     Dosage: UNK
  30. PRIMIDONE [Concomitant]
     Active Substance: PRIMIDONE
  31. ZOCOR [Concomitant]
     Active Substance: SIMVASTATIN
     Dosage: UNK
  32. ZOCOR [Concomitant]
     Active Substance: SIMVASTATIN
  33. EVOXAC [Concomitant]
     Active Substance: CEVIMELINE HYDROCHLORIDE
     Dosage: UNK
  34. EVOXAC [Concomitant]
     Active Substance: CEVIMELINE HYDROCHLORIDE
  35. ANORO ELLIPTA [Concomitant]
     Active Substance: UMECLIDINIUM BROMIDE\VILANTEROL TRIFENATATE
     Dosage: UNK
  36. ANORO ELLIPTA [Concomitant]
     Active Substance: UMECLIDINIUM BROMIDE\VILANTEROL TRIFENATATE
  37. TOLTERODINE TARTRATE [Concomitant]
     Active Substance: TOLTERODINE TARTRATE
     Dosage: 4 G, TID
  38. TOLTERODINE TARTRATE [Concomitant]
     Active Substance: TOLTERODINE TARTRATE
  39. LASIX [Concomitant]
     Active Substance: FUROSEMIDE
  40. OXYGEN [Concomitant]
     Active Substance: OXYGEN
     Dosage: UNK
  41. PLAQUENIL [Concomitant]
     Active Substance: HYDROXYCHLOROQUINE SULFATE
     Dosage: UNK

REACTIONS (5)
  - Hypotension [Not Recovered/Not Resolved]
  - Dyspnoea [Not Recovered/Not Resolved]
  - Respiratory disorder [Unknown]
  - Sinus disorder [Unknown]
  - Product use in unapproved indication [Unknown]

NARRATIVE: CASE EVENT DATE: 20240101
